FAERS Safety Report 14085261 (Version 2)
Quarter: 2017Q4

REPORT INFORMATION
  Report Type: Spontaneous
  Country: US (occurrence: US)
  Receive Date: 20171013
  Receipt Date: 20171103
  Transmission Date: 20180321
  Serious: No
  Sender: FDA-Public Use
  Company Number: US-PFIZER INC-2017442720

PATIENT
  Age: 75 Year
  Sex: Female
  Weight: 82 kg

DRUGS (17)
  1. FLAX SEED [Concomitant]
     Active Substance: FLAX SEED
  2. TYLENOL [Concomitant]
     Active Substance: ACETAMINOPHEN
  3. ALEVE [Concomitant]
     Active Substance: NAPROXEN SODIUM
  4. ADVIL [Concomitant]
     Active Substance: IBUPROFEN
  5. VITAMIN D3 [Concomitant]
     Active Substance: CHOLECALCIFEROL
  6. BIOTIN [Concomitant]
     Active Substance: BIOTIN
  7. IBRANCE [Suspect]
     Active Substance: PALBOCICLIB
     Indication: BREAST CANCER METASTATIC
     Dosage: 75 MG, CYCLIC, (ONE TAB BY MOUTH DAILY 21 DAYS OFF 7 DAYS)
     Route: 048
     Dates: start: 20170118, end: 20171004
  8. NYSTATIN. [Concomitant]
     Active Substance: NYSTATIN
  9. CLARITIN [Concomitant]
     Active Substance: LORATADINE
  10. LETROZOLE. [Concomitant]
     Active Substance: LETROZOLE
  11. IBRANCE [Suspect]
     Active Substance: PALBOCICLIB
     Indication: BREAST CANCER
     Dosage: 75 MG, CYCLIC (ONCE A DAY FOR 21 DAYS, AND THEN OFF FOR 7 DAYS)
     Route: 048
     Dates: start: 201701
  12. ALLEGRA [Concomitant]
     Active Substance: FEXOFENADINE HYDROCHLORIDE
  13. LIPITOR [Concomitant]
     Active Substance: ATORVASTATIN CALCIUM
  14. CRANBERRY. [Concomitant]
     Active Substance: CRANBERRY
  15. AMBIEN [Concomitant]
     Active Substance: ZOLPIDEM TARTRATE
  16. ASTRAGALUS GUMMIFER [Concomitant]
     Active Substance: UNSPECIFIED INGREDIENT
  17. CALCIUM [Concomitant]
     Active Substance: CALCIUM

REACTIONS (1)
  - White blood cell count decreased [Recovering/Resolving]

NARRATIVE: CASE EVENT DATE: 20171004
